FAERS Safety Report 8584828-2 (Version None)
Quarter: 2012Q3

REPORT INFORMATION
  Report Type: 
  Country: None (occurrence: None)
  Receive Date: 20120810
  Receipt Date: 20120412
  Transmission Date: 20120928
  Serious: Yes (Death, Hospitalization)
  Sender: FDA-Public Use
  Company Number: GB-UCBSA-052077

PATIENT
  Age: 76 Year
  Sex: Male

DRUGS (10)
  1. ADCAL D3 [Concomitant]
  2. CIMZIA [Suspect]
     Indication: RHEUMATOID ARTHRITIS
     Route: 058
     Dates: start: 20110301
  3. HYDROXYCHLOROQUINE SULFATE [Concomitant]
     Route: 048
  4. ASPIRIN [Concomitant]
  5. RAMIPRIL [Concomitant]
  6. BISOPROLOL FUMARATE [Concomitant]
  7. METHOTREXATE [Suspect]
     Indication: RHEUMATOID ARTHRITIS
     Route: 048
  8. ATORVASTATIN [Concomitant]
  9. ALENDRONATE SODIUM [Concomitant]
  10. LANSOPRAZOLE [Concomitant]

REACTIONS (1)
  - PNEUMONIA [None]
